FAERS Safety Report 22355229 (Version 1)
Quarter: 2023Q2

REPORT INFORMATION
  Report Type: Spontaneous
  Country: IN (occurrence: IN)
  Receive Date: 20230523
  Receipt Date: 20230523
  Transmission Date: 20230722
  Serious: Yes (Hospitalization)
  Sender: FDA-Public Use
  Company Number: IN-MYLANLABS-2023M1052365

PATIENT
  Age: 6 Year
  Sex: Female

DRUGS (23)
  1. FLUDARABINE [Suspect]
     Active Substance: FLUDARABINE PHOSPHATE
     Indication: Immunosuppressant drug therapy
     Dosage: 40 MILLIGRAM/SQ. METER
     Route: 065
  2. MYCOPHENOLATE MOFETIL [Suspect]
     Active Substance: MYCOPHENOLATE MOFETIL
     Indication: Prophylaxis against graft versus host disease
     Dosage: UNK
     Route: 065
  3. METHYLPREDNISOLONE [Suspect]
     Active Substance: METHYLPREDNISOLONE
     Indication: Haemophagocytic lymphohistiocytosis
     Dosage: 2 MILLIGRAM/KILOGRAM
     Route: 042
  4. METHYLPREDNISOLONE [Suspect]
     Active Substance: METHYLPREDNISOLONE
     Indication: Candida infection
  5. TACROLIMUS [Suspect]
     Active Substance: TACROLIMUS
     Indication: Graft versus host disease in liver
     Dosage: UNK
     Route: 065
  6. LAPINE T-LYMPHOCYTE IMMUNE GLOBULIN [Suspect]
     Active Substance: LAPINE T-LYMPHOCYTE IMMUNE GLOBULIN
     Indication: Immunosuppressant drug therapy
     Dosage: 0.5 MILLIGRAM/KILOGRAM, FOR 1 DAY
     Route: 065
  7. LAPINE T-LYMPHOCYTE IMMUNE GLOBULIN [Suspect]
     Active Substance: LAPINE T-LYMPHOCYTE IMMUNE GLOBULIN
     Dosage: 2 MILLIGRAM/KILOGRAM, FOR 2 DAYS
     Route: 065
  8. CYCLOPHOSPHAMIDE [Suspect]
     Active Substance: CYCLOPHOSPHAMIDE
     Indication: Prophylaxis against graft versus host disease
     Dosage: 14.5 MILLIGRAM/KILOGRAM (FOR 2 DAYS (DAY 6 AND DAY -5))
     Route: 065
  9. CYCLOPHOSPHAMIDE [Suspect]
     Active Substance: CYCLOPHOSPHAMIDE
     Dosage: 50 MILLIGRAM/KILOGRAM (DAY 3 AND DAY 4)
     Route: 065
  10. CYCLOSPORINE [Suspect]
     Active Substance: CYCLOSPORINE
     Indication: Prophylaxis against graft versus host disease
     Dosage: UNK
     Route: 065
  11. ALEMTUZUMAB [Suspect]
     Active Substance: ALEMTUZUMAB
     Indication: Haemophagocytic lymphohistiocytosis
     Dosage: 0.1 MILLIGRAM/KILOGRAM
     Route: 042
  12. ALEMTUZUMAB [Suspect]
     Active Substance: ALEMTUZUMAB
     Indication: Candida infection
  13. BUDESONIDE [Suspect]
     Active Substance: BUDESONIDE
     Indication: Graft versus host disease in gastrointestinal tract
     Dosage: UNK
     Route: 048
  14. RUXOLITINIB [Suspect]
     Active Substance: RUXOLITINIB
     Indication: Graft versus host disease in liver
     Dosage: UNK
     Route: 065
  15. Immunoglobulin [Concomitant]
     Indication: Haemophagocytic lymphohistiocytosis
     Dosage: 1 GRAM PER KILOGRAM
     Route: 042
  16. Immunoglobulin [Concomitant]
     Indication: Candida infection
  17. CASPOFUNGIN [Concomitant]
     Active Substance: CASPOFUNGIN
     Indication: Hepatosplenic candidiasis
     Dosage: UNK
     Route: 065
  18. CASPOFUNGIN [Concomitant]
     Active Substance: CASPOFUNGIN
     Indication: Candida infection
  19. POSACONAZOLE [Concomitant]
     Active Substance: POSACONAZOLE
     Indication: Hepatosplenic candidiasis
     Dosage: UNK
     Route: 065
  20. POSACONAZOLE [Concomitant]
     Active Substance: POSACONAZOLE
     Indication: Candida infection
  21. POSACONAZOLE [Concomitant]
     Active Substance: POSACONAZOLE
     Indication: Haemophagocytic lymphohistiocytosis
  22. FOSCARNET [Concomitant]
     Active Substance: FOSCARNET
     Indication: Cytomegalovirus viraemia
     Dosage: UNK
     Route: 065
  23. ACYCLOVIR [Concomitant]
     Active Substance: ACYCLOVIR
     Indication: Herpes zoster
     Dosage: UNK
     Route: 065

REACTIONS (8)
  - Thrombotic microangiopathy [Recovered/Resolved]
  - Hypertension [Recovering/Resolving]
  - Thrombocytopenia [Recovering/Resolving]
  - Gastrointestinal haemorrhage [Recovering/Resolving]
  - Haematochezia [Recovering/Resolving]
  - Reticulocytopenia [Unknown]
  - Parvovirus infection [Unknown]
  - Off label use [Unknown]
